FAERS Safety Report 6885705-5 (Version None)
Quarter: 2010Q3

REPORT INFORMATION
  Report Type: 
  Country: None (occurrence: None)
  Receive Date: 20100729
  Receipt Date: 20080513
  Transmission Date: 20110219
  Serious: No
  Sender: FDA-Public Use
  Company Number: US-PFIZER INC-2008041274

PATIENT
  Sex: Female
  Weight: 53.2 kg

DRUGS (2)
  1. CELEBREX [Suspect]
     Indication: ROTATOR CUFF SYNDROME
     Dates: start: 20080501, end: 20080512
  2. BENADRYL [Suspect]
     Indication: RASH PRURITIC
     Dates: start: 20080512

REACTIONS (3)
  - FATIGUE [None]
  - RASH PRURITIC [None]
  - URTICARIA [None]
